FAERS Safety Report 15140473 (Version 2)
Quarter: 2018Q3

REPORT INFORMATION
  Report Type: Spontaneous
  Country: JP (occurrence: JP)
  Receive Date: 20180713
  Receipt Date: 20180725
  Transmission Date: 20181010
  Serious: Yes (Other)
  Sender: FDA-Public Use
  Company Number: PHHY2018JP044754

PATIENT
  Age: 78 Year
  Sex: Female

DRUGS (1)
  1. RECLAST [Suspect]
     Active Substance: ZOLEDRONIC ACID
     Indication: OSTEOPOROSIS
     Dosage: 5 MG, Q12MO
     Route: 041
     Dates: start: 20180418

REACTIONS (3)
  - Radius fracture [Not Recovered/Not Resolved]
  - Fall [Unknown]
  - Ulna fracture [Not Recovered/Not Resolved]

NARRATIVE: CASE EVENT DATE: 20180627
